FAERS Safety Report 7645203-8 (Version None)
Quarter: 2011Q3

REPORT INFORMATION
  Report Type: 
  Country: None (occurrence: None)
  Receive Date: 20110725
  Receipt Date: 20110708
  Transmission Date: 20111222
  Serious: Yes (Hospitalization)
  Sender: FDA-Public Use
  Company Number: GER/GER/11/0019051

PATIENT
  Age: 58 Year
  Sex: Male

DRUGS (14)
  1. SERTRALINE HYDROCHLORIDE [Suspect]
     Indication: PRODUCT USED FOR UNKNOWN INDICATION
     Dosage: 50 MG, 1 IN 1 D, ORAL, 100 MG, 1 IN 1 D, ORAL, 150 MG, 1 IN 1 D, ORAL, 200 MG, 1 IN 1 D, ORAL
     Route: 048
     Dates: start: 20100805, end: 20100806
  2. SERTRALINE HYDROCHLORIDE [Suspect]
     Indication: PRODUCT USED FOR UNKNOWN INDICATION
     Dosage: 50 MG, 1 IN 1 D, ORAL, 100 MG, 1 IN 1 D, ORAL, 150 MG, 1 IN 1 D, ORAL, 200 MG, 1 IN 1 D, ORAL
     Route: 048
     Dates: start: 20100708, end: 20100712
  3. SERTRALINE HYDROCHLORIDE [Suspect]
     Indication: PRODUCT USED FOR UNKNOWN INDICATION
     Dosage: 50 MG, 1 IN 1 D, ORAL, 100 MG, 1 IN 1 D, ORAL, 150 MG, 1 IN 1 D, ORAL, 200 MG, 1 IN 1 D, ORAL
     Route: 048
     Dates: start: 20100807
  4. SERTRALINE HYDROCHLORIDE [Suspect]
     Indication: PRODUCT USED FOR UNKNOWN INDICATION
     Dosage: 50 MG, 1 IN 1 D, ORAL, 100 MG, 1 IN 1 D, ORAL, 150 MG, 1 IN 1 D, ORAL, 200 MG, 1 IN 1 D, ORAL
     Route: 048
     Dates: start: 20100609, end: 20100707
  5. SERTRALINE HYDROCHLORIDE [Suspect]
     Indication: PRODUCT USED FOR UNKNOWN INDICATION
     Dosage: 50 MG, 1 IN 1 D, ORAL, 100 MG, 1 IN 1 D, ORAL, 150 MG, 1 IN 1 D, ORAL, 200 MG, 1 IN 1 D, ORAL
     Route: 048
     Dates: start: 20100527, end: 20100608
  6. SERTRALINE HYDROCHLORIDE [Suspect]
     Indication: PRODUCT USED FOR UNKNOWN INDICATION
     Dosage: 50 MG, 1 IN 1 D, ORAL, 100 MG, 1 IN 1 D, ORAL, 150 MG, 1 IN 1 D, ORAL, 200 MG, 1 IN 1 D, ORAL
     Route: 048
     Dates: start: 20100713, end: 20100804
  7. AKINETON RETARD (BIPERIDEN) [Suspect]
     Indication: PRODUCT USED FOR UNKNOWN INDICATION
     Dosage: 2 MG, 1 IN 1 D, ORAL, 4 MG, 1 IN 1 D, ORAL,
     Route: 047
     Dates: start: 20100710
  8. AKINETON RETARD (BIPERIDEN) [Suspect]
     Indication: PRODUCT USED FOR UNKNOWN INDICATION
     Dosage: 2 MG, 1 IN 1 D, ORAL, 4 MG, 1 IN 1 D, ORAL,
     Route: 047
     Dates: start: 20100625, end: 20100709
  9. SEROQUEL [Suspect]
     Indication: PRODUCT USED FOR UNKNOWN INDICATION
     Dosage: ORAL, 300 MG, 1 IN 1 D, ORAL, 800 MG, 1 IN 1 D, ORAL
     Route: 048
     Dates: start: 20100622, end: 20100627
  10. SEROQUEL [Suspect]
     Indication: PRODUCT USED FOR UNKNOWN INDICATION
     Dosage: ORAL, 300 MG, 1 IN 1 D, ORAL, 800 MG, 1 IN 1 D, ORAL
     Route: 048
     Dates: start: 20100805, end: 20110101
  11. SEROQUEL [Suspect]
     Indication: PRODUCT USED FOR UNKNOWN INDICATION
     Dosage: ORAL, 300 MG, 1 IN 1 D, ORAL, 800 MG, 1 IN 1 D, ORAL
     Route: 048
     Dates: start: 20100522, end: 20100602
  12. SEROQUEL [Suspect]
     Indication: PRODUCT USED FOR UNKNOWN INDICATION
     Dosage: ORAL, 300 MG, 1 IN 1 D, ORAL, 800 MG, 1 IN 1 D, ORAL
     Route: 048
     Dates: start: 20100602, end: 20100622
  13. SEROQUEL [Suspect]
     Indication: PRODUCT USED FOR UNKNOWN INDICATION
     Dosage: ORAL, 300 MG, 1 IN 1 D, ORAL, 800 MG, 1 IN 1 D, ORAL
     Route: 048
     Dates: start: 20100628, end: 20100804
  14. DIAZEPAM [Concomitant]

REACTIONS (5)
  - DELIRIUM [None]
  - TREMOR [None]
  - RESTLESSNESS [None]
  - DISORIENTATION [None]
  - CONDITION AGGRAVATED [None]
